FAERS Safety Report 6479226-1 (Version None)
Quarter: 2009Q4

REPORT INFORMATION
  Report Type: 
  Country: None (occurrence: None)
  Receive Date: 20091207
  Receipt Date: 20090318
  Transmission Date: 20100525
  Serious: No
  Sender: FDA-Public Use
  Company Number: US-AMGEN-KDL334380

PATIENT
  Sex: Female
  Weight: 74.5 kg

DRUGS (8)
  1. ENBREL [Suspect]
     Indication: RHEUMATOID ARTHRITIS
     Route: 058
     Dates: start: 20030602
  2. METHOTREXATE [Suspect]
     Route: 048
     Dates: start: 20030711
  3. HUMIRA [Concomitant]
     Dates: start: 20060901, end: 20061103
  4. PREDNISONE [Concomitant]
     Dates: start: 20030528
  5. FOLIC ACID [Concomitant]
     Dates: start: 20030808
  6. B COMPLEX ELX [Concomitant]
     Dates: start: 20031126, end: 20060220
  7. ARTHROTEC [Concomitant]
     Dates: start: 20080701
  8. MINOCYCLINE [Concomitant]
     Dates: start: 20041103, end: 20080430

REACTIONS (5)
  - ALOPECIA [None]
  - CONTUSION [None]
  - LEUKOPENIA [None]
  - RHEUMATOID ARTHRITIS [None]
  - SWELLING [None]
